FAERS Safety Report 8785279 (Version 1)
Quarter: 2012Q4

REPORT INFORMATION
  Report Type: 
  Country: BR (occurrence: FR)
  Receive Date: 20120914
  Receipt Date: 20120914
  Transmission Date: 20130627
  Serious: Yes (Other)
  Sender: FDA-Public Use
  Company Number: FR-BRISTOL-MYERS SQUIBB COMPANY-16924920

PATIENT
  Age: 57 Year
  Sex: Male

DRUGS (3)
  1. TRIAMCINOLONE ACETONIDE [Suspect]
     Indication: HEPATITIS B
  2. RITONAVIR [Interacting]
     Indication: HEPATITIS B
  3. FLUTICASONE [Interacting]
     Indication: HEPATITIS B

REACTIONS (2)
  - Hepatitis B [Unknown]
  - Drug interaction [Unknown]
